FAERS Safety Report 23918062 (Version 1)
Quarter: 2024Q2

REPORT INFORMATION
  Report Type: Spontaneous
  Country: US (occurrence: US)
  Receive Date: 20240530
  Receipt Date: 20240530
  Transmission Date: 20240716
  Serious: Yes (Other)
  Sender: FDA-Public Use
  Company Number: US-SUN PHARMACEUTICAL INDUSTRIES LTD-2024R1-448759

PATIENT
  Age: 20 Year
  Sex: Male

DRUGS (2)
  1. METHOTREXATE [Suspect]
     Active Substance: METHOTREXATE
     Indication: Dermatomyositis
     Route: 065
  2. PLAQUENIL [Suspect]
     Active Substance: HYDROXYCHLOROQUINE SULFATE
     Indication: Dermatomyositis
     Route: 065

REACTIONS (9)
  - Coronavirus infection [Unknown]
  - Meningitis bacterial [Unknown]
  - Acute disseminated encephalomyelitis [Unknown]
  - Klebsiella urinary tract infection [Unknown]
  - Klebsiella sepsis [Unknown]
  - Acute kidney injury [Unknown]
  - Autoimmune haemolytic anaemia [Unknown]
  - Immune thrombocytopenia [Unknown]
  - C3 glomerulopathy [Unknown]
